FAERS Safety Report 5237413-4 (Version None)
Quarter: 2007Q1

REPORT INFORMATION
  Report Type: 
  Country: None (occurrence: None)
  Receive Date: 20070213
  Receipt Date: 20070205
  Transmission Date: 20070707
  Serious: Yes (Hospitalization)
  Sender: FDA-Public Use
  Company Number: SG-BOEHRINGER INGELHEIM GMBH, GERMANY-2007-DE-00688GD

PATIENT
  Age: 21 Year
  Sex: Female
  Weight: 50 kg

DRUGS (2)
  1. PARACETAMOL [Suspect]
     Route: 048
  2. CODEINE [Suspect]
     Route: 048

REACTIONS (5)
  - DRUG ABUSER [None]
  - DRUG TOXICITY [None]
  - HYPERAMYLASAEMIA [None]
  - NAUSEA [None]
  - SUICIDE ATTEMPT [None]
